FAERS Safety Report 17051107 (Version 1)
Quarter: 2019Q4

REPORT INFORMATION
  Report Type: Spontaneous
  Country: US (occurrence: US)
  Receive Date: 20191120
  Receipt Date: 20191120
  Transmission Date: 20200122
  Serious: No
  Sender: FDA-Public Use
  Company Number: US-JNJFOC-20191125495

PATIENT
  Sex: Female
  Weight: 74 kg

DRUGS (1)
  1. MENS ROGAINE EXTRA STRENGTH [Suspect]
     Active Substance: MINOXIDIL
     Indication: ALOPECIA
     Dosage: DOSE: 1/2 A CAPFUL AND FREQUENCY:  ONCE A DAY
     Route: 061
     Dates: start: 2012, end: 201906

REACTIONS (2)
  - Off label use [Unknown]
  - Product use issue [Unknown]
